FAERS Safety Report 6644575-0 (Version None)
Quarter: 2010Q1

REPORT INFORMATION
  Report Type: 
  Country: None (occurrence: None)
  Receive Date: 20100317
  Receipt Date: 20100302
  Transmission Date: 20100710
  Serious: Yes (Hospitalization, Other)
  Sender: FDA-Public Use
  Company Number: 2010000246

PATIENT
  Age: 62 Year
  Sex: Male
  Weight: 60.2 kg

DRUGS (17)
  1. ERLOTINIB HYDROCHLORIDE [Suspect]
     Indication: LUNG ADENOCARCINOMA
     Dosage: 150 MG, QD, ORAL, 125 MG, QD, ORAL, 100 MG, QD, ORAL
     Route: 048
     Dates: start: 20081223, end: 20090309
  2. ERLOTINIB HYDROCHLORIDE [Suspect]
     Indication: LUNG ADENOCARCINOMA
     Dosage: 150 MG, QD, ORAL, 125 MG, QD, ORAL, 100 MG, QD, ORAL
     Route: 048
     Dates: start: 20090602, end: 20091109
  3. ERLOTINIB HYDROCHLORIDE [Suspect]
     Indication: LUNG ADENOCARCINOMA
     Dosage: 150 MG, QD, ORAL, 125 MG, QD, ORAL, 100 MG, QD, ORAL
     Route: 048
     Dates: start: 20080930, end: 20100204
  4. MAGNEVIST [Suspect]
     Indication: DRUG USE FOR UNKNOWN INDICATION
     Dosage: INTRAVENOUS
     Route: 042
  5. ALDACTONE [Suspect]
     Indication: HYPERTENSION
     Dosage: 25 MG, QD, ORAL
     Route: 048
  6. LASIX [Suspect]
     Indication: HYPERTENSION
     Dosage: 40 MG, QD, ORAL
     Route: 048
  7. LOXONIN (LOXOPROFEN SODIUM) [Suspect]
     Indication: DRUG USE FOR UNKNOWN INDICATION
     Dosage: 180 MG, QD, ORAL
     Route: 048
  8. ZOMETA [Suspect]
     Indication: DRUG USE FOR UNKNOWN INDICATION
     Dosage: 4 MG, INTRAVENOUS
     Route: 042
     Dates: start: 20090406
  9. DECADRON [Suspect]
     Indication: DRUG USE FOR UNKNOWN INDICATION
     Dosage: ORAL
     Route: 048
  10. CYTOTEC [Concomitant]
  11. MAGNESIUM OXIDE (MAGNESIUM OXIDE) [Concomitant]
  12. MUCOSTA (REBAMIPIDE) [Concomitant]
  13. TORSEMIDE [Concomitant]
  14. OXYCONTIN [Concomitant]
  15. NOVOLIN R [Concomitant]
  16. MUCOSOLVAN (AMBROXOL HYDROCHLORIDE) [Concomitant]
  17. FLOMOX (CEFCAPENE PIVOXIL HYDROCHLORIDE) [Concomitant]

REACTIONS (3)
  - ANAPHYLACTIC REACTION [None]
  - LEUKOENCEPHALOPATHY [None]
  - MELAENA [None]
